FAERS Safety Report 4381798-8 (Version None)
Quarter: 2004Q2

REPORT INFORMATION
  Report Type: 
  Country: None (occurrence: None)
  Receive Date: 20040603
  Receipt Date: 20030801
  Transmission Date: 20050107
  Serious: Yes (Other)
  Sender: FDA-Public Use
  Company Number: 200315525US

PATIENT
  Age: 58 Year
  Sex: Male
  Weight: 75.9 kg

DRUGS (4)
  1. HEPARIN [Suspect]
  2. WARFARIN SODIUM [Concomitant]
  3. TAXOL [Concomitant]
  4. CARBOPLATIN [Concomitant]

REACTIONS (1)
  - HEPARIN-INDUCED THROMBOCYTOPENIA [None]
